FAERS Safety Report 9759157 (Version 1)
Quarter: 2013Q4

REPORT INFORMATION
  Report Type: Spontaneous
  Country: GB (occurrence: GB)
  Receive Date: 20131216
  Receipt Date: 20131216
  Transmission Date: 20140711
  Serious: Yes (Other)
  Sender: FDA-Public Use
  Company Number: GB-ASTELLAS-2013EU011113

PATIENT
  Sex: Male

DRUGS (1)
  1. VESICARE [Suspect]
     Dosage: 5 UNK, UNKNOWN/D
     Route: 065

REACTIONS (1)
  - Heart rate irregular [Recovered/Resolved]
